FAERS Safety Report 21935709 (Version 1)
Quarter: 2023Q1

REPORT INFORMATION
  Report Type: Report from Study
  Country: DE (occurrence: None)
  Receive Date: 20230201
  Receipt Date: 20230201
  Transmission Date: 20230418
  Serious: Yes (Life-Threatening, Hospitalization)
  Sender: FDA-Public Use
  Company Number: DE-ROCHE-3223306

PATIENT
  Age: 83 Year
  Sex: Male
  Weight: 69 kg

DRUGS (13)
  1. OBINUTUZUMAB [Suspect]
     Active Substance: OBINUTUZUMAB
     Indication: Chronic lymphocytic leukaemia
     Dosage: RECEIVED LAST DOSE ON 03/APR/2018 CYCLE 1: 100 MG, D1; 900 MG, D1(2); 1000 MG, D8+15, Q28D CYCLES 2-
     Route: 042
     Dates: start: 20171115
  2. IBRUTINIB [Suspect]
     Active Substance: IBRUTINIB
     Indication: Chronic lymphocytic leukaemia
     Dosage: RECEIVED LAST DOSE ON 12/DEC/2018. CYCLES 1-12: 420 MG, D1-28, Q28D CYCLES 13-36: 420 MG, D1-28, Q28
     Route: 048
     Dates: start: 20171115
  3. VENETOCLAX [Suspect]
     Active Substance: VENETOCLAX
     Indication: Chronic lymphocytic leukaemia
     Dosage: RECEIVED LAST DOSE ON 17/OCT/2018 CYCLE 1: 20 MG (2 TABL. AT 10 MG), D22-28, Q28D CYCLE 2: 50 MG (1
     Route: 048
     Dates: start: 20171115
  4. AZACITIDINE [Suspect]
     Active Substance: AZACITIDINE
     Indication: Diverticulitis
     Route: 065
  5. POSACONAZOLE [Concomitant]
     Active Substance: POSACONAZOLE
     Route: 048
     Dates: start: 20220905
  6. POSACONAZOLE [Concomitant]
     Active Substance: POSACONAZOLE
     Route: 048
     Dates: start: 20221108, end: 20221118
  7. KALINOR [Concomitant]
     Route: 048
     Dates: start: 20221113, end: 20221117
  8. KALINOR [Concomitant]
     Route: 048
     Dates: start: 20221107, end: 20221112
  9. COTRIM [Concomitant]
     Active Substance: SULFAMETHOXAZOLE\TRIMETHOPRIM
     Route: 048
     Dates: start: 20221109, end: 20221118
  10. FUROSEMIDE [Concomitant]
     Active Substance: FUROSEMIDE
     Route: 048
     Dates: start: 20221113, end: 20221113
  11. FUROSEMIDE [Concomitant]
     Active Substance: FUROSEMIDE
     Dates: start: 20221115, end: 20221115
  12. GRANISETRON [Concomitant]
     Active Substance: GRANISETRON
     Route: 048
     Dates: start: 20221115, end: 20221115
  13. MCP [Concomitant]
     Active Substance: METOCLOPRAMIDE HYDROCHLORIDE
     Route: 048
     Dates: start: 20221118, end: 20221118

REACTIONS (2)
  - Diverticulitis [Recovered/Resolved]
  - Bacteraemia [Recovered/Resolved]

NARRATIVE: CASE EVENT DATE: 20221106
